FAERS Safety Report 18777869 (Version 3)
Quarter: 2021Q3

REPORT INFORMATION
  Report Type: Spontaneous
  Country: US (occurrence: US)
  Receive Date: 20210122
  Receipt Date: 20210722
  Transmission Date: 20211014
  Serious: No
  Sender: FDA-Public Use
  Company Number: 2020SGN03642

PATIENT
  Age: 56 Year
  Sex: Female

DRUGS (6)
  1. TUKYSA [Suspect]
     Active Substance: TUCATINIB
     Indication: BREAST CANCER FEMALE
     Dosage: 2 DF, BID
  2. TUKYSA [Suspect]
     Active Substance: TUCATINIB
     Dosage: 2 DF, BID
  3. TUKYSA [Suspect]
     Active Substance: TUCATINIB
     Dosage: 2 DF, BID
  4. GABAPENTIN. [Concomitant]
     Active Substance: GABAPENTIN
  5. TUKYSA [Suspect]
     Active Substance: TUCATINIB
     Dosage: 2 DF, BID
  6. TUKYSA [Suspect]
     Active Substance: TUCATINIB
     Dosage: 2 UNK

REACTIONS (9)
  - Neuropathy peripheral [Unknown]
  - Sinusitis [Unknown]
  - Spinal pain [Unknown]
  - Fatigue [Unknown]
  - Somnolence [Unknown]
  - Diarrhoea [Recovered/Resolved]
  - Rash macular [Unknown]
  - Acne cystic [Unknown]
  - Product dose omission issue [Unknown]

NARRATIVE: CASE EVENT DATE: 20200813
